FAERS Safety Report 5497915-2 (Version None)
Quarter: 2007Q4

REPORT INFORMATION
  Report Type: 
  Country: None (occurrence: None)
  Receive Date: 20071018
  Receipt Date: 20061016
  Transmission Date: 20080405
  Serious: Yes (Other)
  Sender: FDA-Public Use
  Company Number: 2006126233

PATIENT
  Age: 70 Year
  Sex: Female
  Weight: 90.7194 kg

DRUGS (9)
  1. NEURONTIN [Suspect]
     Indication: PAIN IN EXTREMITY
     Dosage: 2400 MG (600 MG, 4 IN 1 D)
  2. GABAPENTIN [Suspect]
     Indication: NEUROPATHY
     Dosage: 3200 MG (800 MG, 4 IN 1 D)
  3. ALDACTONE [Concomitant]
  4. KLOR-CON [Concomitant]
  5. WARFARIN SODIUM [Concomitant]
  6. COZAAR [Concomitant]
  7. LASIX [Concomitant]
  8. VITAMIN B6 [Concomitant]
  9. MULTI-VITAMINS [Concomitant]

REACTIONS (4)
  - ABDOMINAL PAIN UPPER [None]
  - ARTHRITIS [None]
  - DRUG INEFFECTIVE [None]
  - TYPE 2 DIABETES MELLITUS [None]
